FAERS Safety Report 8107727-9 (Version None)
Quarter: 2012Q1

REPORT INFORMATION
  Report Type: 
  Country: None (occurrence: None)
  Receive Date: 20120202
  Receipt Date: 20120127
  Transmission Date: 20120608
  Serious: Yes (Other)
  Sender: FDA-Public Use
  Company Number: US-JNJFOC-20120102651

PATIENT
  Sex: Female
  Weight: 54.89 kg

DRUGS (5)
  1. LISINOPRIL [Concomitant]
     Indication: HYPERTENSION
     Route: 048
  2. GALANTAMINE HYDROBROMIDE [Concomitant]
     Indication: MEMORY IMPAIRMENT
     Route: 048
  3. OMEPRAZOLE [Concomitant]
     Indication: GASTROOESOPHAGEAL REFLUX DISEASE
     Route: 048
  4. RISPERIDONE [Suspect]
     Route: 048
     Dates: start: 20110616
  5. RISPERIDONE [Suspect]
     Indication: SLEEP DISORDER
     Route: 048

REACTIONS (7)
  - HAEMORRHAGE INTRACRANIAL [None]
  - DISTURBANCE IN SOCIAL BEHAVIOUR [None]
  - COUGH [None]
  - FALL [None]
  - ANGER [None]
  - OFF LABEL USE [None]
  - DROOLING [None]
